FAERS Safety Report 4577376-8 (Version None)
Quarter: 2005Q1

REPORT INFORMATION
  Report Type: 
  Country: None (occurrence: None)
  Receive Date: 20050210
  Receipt Date: 20050128
  Transmission Date: 20050727
  Serious: Yes (Other)
  Sender: FDA-Public Use
  Company Number: AU-GLAXOSMITHKLINE-B0370529A

PATIENT
  Age: 50 Year
  Sex: Female

DRUGS (6)
  1. IMIGRAN [Suspect]
     Indication: MIGRAINE
     Dosage: 20MG PER DAY
     Route: 048
     Dates: start: 19990819
  2. LEFLUNOMIDE [Suspect]
     Indication: RHEUMATOID ARTHRITIS
     Dosage: 20MG PER DAY
     Route: 048
     Dates: start: 19990729
  3. INDERAL [Suspect]
     Indication: MIGRAINE
     Dosage: 40MG PER DAY
     Route: 048
     Dates: start: 19990501
  4. PREMIA CONTINUOUS [Suspect]
     Indication: MENOPAUSAL SYMPTOMS
     Dosage: 2.5MG PER DAY
     Route: 048
     Dates: start: 19991019
  5. FENAC [Suspect]
     Indication: RHEUMATOID ARTHRITIS
     Dosage: 50MG PER DAY
     Route: 048
     Dates: start: 19991104
  6. ACETAMINOPHEN [Concomitant]
     Dosage: 1G PER DAY
     Route: 048

REACTIONS (2)
  - HEPATIC FUNCTION ABNORMAL [None]
  - NEUTROPENIA [None]
